FAERS Safety Report 21458119 (Version 3)
Quarter: 2022Q4

REPORT INFORMATION
  Report Type: Spontaneous
  Country: US (occurrence: US)
  Receive Date: 20221014
  Receipt Date: 20221025
  Transmission Date: 20230112
  Serious: No
  Sender: FDA-Public Use
  Company Number: US-PFIZER INC-202201222422

PATIENT
  Age: 65 Year
  Sex: Female
  Weight: 72.12 kg

DRUGS (5)
  1. PAXLOVID [Suspect]
     Active Substance: NIRMATRELVIR\RITONAVIR
     Indication: COVID-19 treatment
     Dosage: UNK (300 MG/100 MG DOSE PACK)
     Dates: start: 20221006, end: 20221011
  2. PIROXICAM [Concomitant]
     Active Substance: PIROXICAM
     Indication: Anxiety
     Dosage: 10 MG (LAST 7 YEARS ONLY 10MG)
  3. PIROXICAM [Concomitant]
     Active Substance: PIROXICAM
     Indication: Panic attack
     Dosage: 5 MG
     Dates: start: 20221010
  4. PIROXICAM [Concomitant]
     Active Substance: PIROXICAM
     Dosage: 20 MG
  5. TOPRAL [SULTOPRIDE] [Concomitant]
     Indication: Palpitations
     Dosage: 12.5 MG, ALTERNATE DAY

REACTIONS (10)
  - Nausea [Unknown]
  - Dysgeusia [Not Recovered/Not Resolved]
  - Diarrhoea [Not Recovered/Not Resolved]
  - Dizziness [Unknown]
  - Asthenia [Unknown]
  - Weight decreased [Unknown]
  - Decreased appetite [Unknown]
  - Malaise [Unknown]
  - Metabolic disorder [Unknown]
  - Feeling abnormal [Unknown]

NARRATIVE: CASE EVENT DATE: 20221006
